FAERS Safety Report 16494939 (Version 4)
Quarter: 2019Q3

REPORT INFORMATION
  Report Type: Spontaneous
  Country: US (occurrence: US)
  Receive Date: 20190628
  Receipt Date: 20190916
  Transmission Date: 20191004
  Serious: Yes (Hospitalization, Other)
  Sender: FDA-Public Use
  Company Number: US-PFIZER INC-2019266294

PATIENT
  Sex: Female
  Weight: 95.25 kg

DRUGS (2)
  1. LYRICA [Suspect]
     Active Substance: PREGABALIN
     Indication: NEUROPATHY PERIPHERAL
     Dosage: 300 MG, 3X/DAY
     Route: 048
  2. GABAPENTIN. [Concomitant]
     Active Substance: GABAPENTIN
     Dosage: UNK

REACTIONS (12)
  - Coma [Unknown]
  - Prescribed overdose [Unknown]
  - Respiratory distress [Unknown]
  - Pain [Unknown]
  - Mobility decreased [Unknown]
  - Intervertebral disc degeneration [Unknown]
  - Amnesia [Unknown]
  - Neck injury [Unknown]
  - Migraine [Unknown]
  - Intervertebral disc protrusion [Unknown]
  - Ehlers-Danlos syndrome [Unknown]
  - Respiratory failure [Unknown]

NARRATIVE: CASE EVENT DATE: 201804
